FAERS Safety Report 9055393 (Version 2)
Quarter: 2013Q2

REPORT INFORMATION
  Report Type: Report from Study
  Country: US (occurrence: US)
  Receive Date: 20130209
  Receipt Date: 20130405
  Transmission Date: 20140414
  Serious: Yes (Other)
  Sender: FDA-Public Use
  Company Number: US-US-EMD SERONO, INC.-7188253

PATIENT
  Age: 50 Year
  Sex: Female

DRUGS (3)
  1. REBIF [Suspect]
     Indication: MULTIPLE SCLEROSIS
     Route: 058
     Dates: start: 20121217
  2. REBIF [Suspect]
     Route: 058
     Dates: start: 20130114, end: 20130114
  3. DILAUDID /00080902/ [Concomitant]
     Indication: BACK PAIN

REACTIONS (4)
  - Breast cancer [Not Recovered/Not Resolved]
  - Dyspnoea [Unknown]
  - Feeling cold [Unknown]
  - Fatigue [Unknown]
